FAERS Safety Report 15142913 (Version 1)
Quarter: 2018Q3

REPORT INFORMATION
  Report Type: Spontaneous
  Country: US (occurrence: US)
  Receive Date: 20180618
  Receipt Date: 20180618
  Transmission Date: 20181010
  Serious: Yes (Other)
  Sender: FDA-Public Use
  Company Number: None

PATIENT
  Age: 69 Year
  Sex: Female
  Weight: 85.5 kg

DRUGS (1)
  1. CEFADROXIL 500 MG CAPS AUR, GENERIC CEFADROXIL MONOHYDRATE [Suspect]
     Active Substance: CEFADROXIL
     Indication: SURGERY
     Dosage: ?          QUANTITY:1 CAPSULE(S);?
     Route: 048
     Dates: start: 20180613, end: 20180617

REACTIONS (4)
  - Urticaria [None]
  - Musculoskeletal stiffness [None]
  - Myalgia [None]
  - Pruritus [None]

NARRATIVE: CASE EVENT DATE: 20180617
